FAERS Safety Report 10451475 (Version 2)
Quarter: 2014Q3

REPORT INFORMATION
  Report Type: Report from Study
  Country: US (occurrence: US)
  Receive Date: 20140912
  Receipt Date: 20140912
  Transmission Date: 20150326
  Serious: Yes (Death, Hospitalization)
  Sender: FDA-Public Use
  Company Number: US-ACTELION-A-US2013-93144

PATIENT
  Age: 81 Year
  Sex: Male

DRUGS (3)
  1. ADCIRCA [Concomitant]
     Active Substance: TADALAFIL
  2. TRACLEER [Suspect]
     Active Substance: BOSENTAN\BOSENTAN MONOHYDRATE
     Indication: PULMONARY ARTERIAL HYPERTENSION
     Dosage: UNK
     Route: 048
  3. COUMADIN [Concomitant]
     Active Substance: WARFARIN SODIUM

REACTIONS (11)
  - Drug dose omission [Unknown]
  - Death [Fatal]
  - Dyspnoea [Recovering/Resolving]
  - Weight increased [Unknown]
  - Right ventricular failure [Recovering/Resolving]
  - Fluid retention [Recovering/Resolving]
  - Oxygen saturation decreased [Unknown]
  - Oedema peripheral [Unknown]
  - Sarcopenia [Unknown]
  - Palpitations [Unknown]
  - General physical health deterioration [Unknown]

NARRATIVE: CASE EVENT DATE: 201312
